FAERS Safety Report 8807526 (Version 1)
Quarter: 2012Q4

REPORT INFORMATION
  Report Type: 
  Country: GB (occurrence: GB)
  Receive Date: 20120925
  Receipt Date: 20120925
  Transmission Date: 20130627
  Serious: Yes (Hospitalization, Other)
  Sender: FDA-Public Use
  Company Number: GB-TEVA-358901ISR

PATIENT
  Age: 88 Year
  Sex: Male

DRUGS (10)
  1. WARFARIN [Suspect]
  2. COLCHICINE [Interacting]
     Indication: GOUT
     Dosage: 2 tablets initally then directed to take one every 2-3 hours
     Route: 048
     Dates: start: 20120611, end: 20120612
  3. SPIRONOLACTONE [Concomitant]
  4. BUMETANIDE [Concomitant]
  5. DIGOXIN [Concomitant]
  6. OMEPRAZOLE [Concomitant]
  7. SALMETEROL AND FLUTICASONE [Concomitant]
  8. VENTOLIN [Concomitant]
  9. PIROXICAM [Concomitant]
  10. RAMIPRIL [Concomitant]

REACTIONS (2)
  - International normalised ratio increased [Recovering/Resolving]
  - Drug interaction [Unknown]
